FAERS Safety Report 6177215-8 (Version None)
Quarter: 2009Q2

REPORT INFORMATION
  Report Type: 
  Country: None (occurrence: None)
  Receive Date: 20090504
  Receipt Date: 20090423
  Transmission Date: 20091009
  Serious: Yes (Hospitalization, Other)
  Sender: FDA-Public Use
  Company Number: PHHY2009FR03387

PATIENT
  Age: 83 Year
  Sex: Female
  Weight: 55 kg

DRUGS (4)
  1. EXELON [Suspect]
     Indication: DEMENTIA WITH LEWY BODIES
     Dosage: 4.6 MG, QD
     Route: 062
     Dates: start: 20081227, end: 20090105
  2. EXELON [Suspect]
     Indication: HALLUCINATION
  3. MOGADON [Concomitant]
  4. EFFEXOR [Concomitant]

REACTIONS (4)
  - BLOOD ALBUMIN DECREASED [None]
  - CONDITION AGGRAVATED [None]
  - HALLUCINATION, VISUAL [None]
  - RENAL FAILURE [None]
